FAERS Safety Report 9056181 (Version 1)
Quarter: 2013Q1

REPORT INFORMATION
  Report Type: Spontaneous
  Country: BR (occurrence: BR)
  Receive Date: 20130205
  Receipt Date: 20130205
  Transmission Date: 20140127
  Serious: Yes (Hospitalization, Other)
  Sender: FDA-Public Use
  Company Number: BR-PFIZER INC-2013044361

PATIENT
  Age: 61 Year
  Sex: Female

DRUGS (5)
  1. ATENOLOL [Suspect]
     Indication: HYPERTENSION
     Dosage: 2 DF (50MG X 2), DAILY
     Route: 048
     Dates: start: 2000
  2. ATENOLOL [Suspect]
     Indication: ARRHYTHMIA
  3. ATACAND [Suspect]
     Indication: HYPERTENSION
     Dosage: 8 MG, DAILY
     Route: 048
     Dates: start: 2002
  4. CRESTOR [Suspect]
     Indication: BLOOD CHOLESTEROL INCREASED
     Dosage: 10 MG, DAILY
     Route: 048
     Dates: start: 2002
  5. SIMVASTATIN [Suspect]
     Indication: BLOOD CHOLESTEROL INCREASED
     Dosage: UNK
     Route: 048
     Dates: end: 2002

REACTIONS (2)
  - Arterial occlusive disease [Recovered/Resolved]
  - Blood cholesterol abnormal [Recovered/Resolved]
